FAERS Safety Report 14588356 (Version 1)
Quarter: 2018Q1

REPORT INFORMATION
  Report Type: Spontaneous
  Country: US (occurrence: US)
  Receive Date: 20180301
  Receipt Date: 20180301
  Transmission Date: 20180509
  Serious: Yes (Other)
  Sender: FDA-Public Use
  Company Number: None

PATIENT
  Age: 32 Year
  Sex: Female
  Weight: 68.73 kg

DRUGS (1)
  1. GLATIRAMER ACETATE 40 MG/ML [Suspect]
     Active Substance: GLATIRAMER ACETATE
     Indication: MULTIPLE SCLEROSIS
     Route: 058
     Dates: start: 20180130

REACTIONS (5)
  - Injection site pain [None]
  - Injection site warmth [None]
  - Injection site swelling [None]
  - Injection site erythema [None]
  - Injection site urticaria [None]
